FAERS Safety Report 16468221 (Version 2)
Quarter: 2019Q2

REPORT INFORMATION
  Report Type: Spontaneous
  Country: IT (occurrence: IT)
  Receive Date: 20190624
  Receipt Date: 20190624
  Transmission Date: 20190711
  Serious: Yes (Life-Threatening)
  Sender: FDA-Public Use
  Company Number: PHHY2019IT144134

PATIENT
  Age: 20 Year
  Sex: Female

DRUGS (8)
  1. LOBIVON [Suspect]
     Active Substance: NEBIVOLOL HYDROCHLORIDE
     Indication: DRUG ABUSE
     Dosage: 140 MG, TOTAL
     Route: 048
     Dates: start: 20190404, end: 20190404
  2. EN [Suspect]
     Active Substance: DELORAZEPAM
     Indication: DRUG ABUSE
     Dosage: 20 MG, TOTAL
     Route: 048
     Dates: start: 20190404, end: 20190404
  3. AZITHROMYCIN ANHYDROUS. [Suspect]
     Active Substance: AZITHROMYCIN ANHYDROUS
     Indication: DRUG ABUSE
     Dosage: 1500 MG, TOTAL
     Route: 048
     Dates: start: 20190404, end: 20190404
  4. AMISULPRIDE [Suspect]
     Active Substance: AMISULPRIDE
     Indication: DRUG ABUSE
     Dosage: 600 MG, TOTAL
     Route: 048
     Dates: start: 20190404, end: 20190404
  5. TEGRETOL [Suspect]
     Active Substance: CARBAMAZEPINE
     Indication: DRUG ABUSE
     Dosage: 8 G, TOTAL
     Route: 048
     Dates: start: 20190404, end: 20190404
  6. NOVORAPID [Suspect]
     Active Substance: INSULIN ASPART
     Indication: DRUG ABUSE
     Dosage: 2 DF, TOTAL
     Route: 058
     Dates: start: 20190404, end: 20190404
  7. PAROXETINE. [Suspect]
     Active Substance: PAROXETINE
     Indication: DRUG ABUSE
     Dosage: 20 MG, TOTAL
     Route: 048
     Dates: start: 20190404, end: 20190404
  8. QUETIAPINE FUMARATE. [Suspect]
     Active Substance: QUETIAPINE FUMARATE
     Indication: DRUG ABUSE
     Dosage: 1 G, TOTAL
     Route: 048
     Dates: start: 20190404, end: 20190404

REACTIONS (3)
  - Respiratory failure [Recovering/Resolving]
  - Hypoglycaemia [Recovering/Resolving]
  - Drug abuse [Recovering/Resolving]

NARRATIVE: CASE EVENT DATE: 20190404
